FAERS Safety Report 6710326-4 (Version None)
Quarter: 2010Q2

REPORT INFORMATION
  Report Type: 
  Country: None (occurrence: None)
  Receive Date: 20100504
  Receipt Date: 20100420
  Transmission Date: 20101027
  Serious: Yes (Hospitalization)
  Sender: FDA-Public Use
  Company Number: BR-MEDIMMUNE-MEDI-0011141

PATIENT
  Sex: Female
  Weight: 8 kg

DRUGS (4)
  1. SYNAGIS [Suspect]
     Indication: CARDIAC DISORDER
     Route: 030
     Dates: start: 20090408
  2. FERROUS SULFATE TAB [Concomitant]
     Indication: RED BLOOD CELL ABNORMALITY
     Route: 048
  3. PROTOVIT [Concomitant]
     Indication: PROPHYLAXIS
     Route: 048
     Dates: start: 20090201
  4. PROPRANOLOL [Concomitant]
     Route: 048

REACTIONS (4)
  - BRONCHIOLITIS [None]
  - NAUSEA [None]
  - PYREXIA [None]
  - SKIN EXFOLIATION [None]
